FAERS Safety Report 8341895-9 (Version None)
Quarter: 2012Q2

REPORT INFORMATION
  Report Type: 
  Country: None (occurrence: None)
  Receive Date: 20120503
  Receipt Date: 20120420
  Transmission Date: 20120825
  Serious: Yes (Other)
  Sender: FDA-Public Use
  Company Number: JPI-P-019646

PATIENT
  Age: 57 Year
  Sex: Female
  Weight: 98.8842 kg

DRUGS (7)
  1. VITAMIN D [Concomitant]
  2. NAPROXEN SODIUM [Concomitant]
  3. ATENOLOL [Concomitant]
  4. XYREM [Suspect]
     Indication: CATAPLEXY
     Dosage: 3 GM (1.5 GM, 2 IN 1 D), ORAL
     Route: 048
     Dates: start: 20091208
  5. LOSARTAN POTASSIUM [Concomitant]
  6. HYDROCHLOROTHIAZIDE [Concomitant]
  7. VENLAFAXINE HYDROCHLORIDE [Concomitant]

REACTIONS (2)
  - CONDITION AGGRAVATED [None]
  - OSTEOPOROSIS [None]
